FAERS Safety Report 4619945-2 (Version None)
Quarter: 2005Q1

REPORT INFORMATION
  Report Type: 
  Country: None (occurrence: None)
  Receive Date: 20050328
  Receipt Date: 19991217
  Transmission Date: 20050727
  Serious: Yes (Other)
  Sender: FDA-Public Use
  Company Number: AU-ABBOTT-99P-008-0085758-00

PATIENT
  Age: 26 Year
  Sex: Male

DRUGS (1)
  1. KLACID [Suspect]
     Indication: LOWER RESPIRATORY TRACT INFECTION
     Route: 048

REACTIONS (4)
  - DYSPNOEA [None]
  - HYPERSENSITIVITY [None]
  - PARAESTHESIA MUCOSAL [None]
  - TACHYCARDIA [None]
